FAERS Safety Report 8122104-2 (Version None)
Quarter: 2012Q1

REPORT INFORMATION
  Report Type: 
  Country: None (occurrence: None)
  Receive Date: 20120208
  Receipt Date: 20120202
  Transmission Date: 20120608
  Serious: Yes (Other)
  Sender: FDA-Public Use
  Company Number: US-JNJFOC-20120104004

PATIENT
  Sex: Female
  Weight: 68.04 kg

DRUGS (9)
  1. RISPERDAL [Suspect]
     Route: 048
     Dates: start: 20120121
  2. RISPERDAL [Suspect]
     Indication: PSYCHOTIC DISORDER
     Route: 048
     Dates: start: 20120121
  3. RISPERDAL [Suspect]
     Dosage: ONCE DAILY AT NIGHT
     Route: 048
     Dates: start: 20120103, end: 20120120
  4. WARFARIN SODIUM [Concomitant]
     Indication: ATRIAL FIBRILLATION
     Route: 048
     Dates: start: 20110401
  5. RISPERDAL [Suspect]
     Indication: DELUSION
     Dosage: ONCE DAILY AT NIGHT
     Route: 048
     Dates: start: 20120103, end: 20120120
  6. RISPERDAL [Suspect]
     Indication: DEMENTIA
     Route: 048
     Dates: start: 20120121
  7. RISPERDAL [Suspect]
     Dosage: ONCE DAILY AT NIGHT
     Route: 048
     Dates: start: 20120103, end: 20120120
  8. UNKNOWN MEDICATION [Concomitant]
     Indication: HYPOTHYROIDISM
     Route: 048
     Dates: start: 19920101
  9. METOPROLOL [Concomitant]
     Indication: ATRIAL FIBRILLATION
     Route: 048
     Dates: start: 20110101

REACTIONS (7)
  - CONFUSIONAL STATE [None]
  - ANTICOAGULATION DRUG LEVEL BELOW THERAPEUTIC [None]
  - AGITATION [None]
  - DRUG INEFFECTIVE [None]
  - CARDIAC FAILURE CONGESTIVE [None]
  - WEIGHT INCREASED [None]
  - JOINT SWELLING [None]
